FAERS Safety Report 8113948-1 (Version None)
Quarter: 2012Q1

REPORT INFORMATION
  Report Type: 
  Country: None (occurrence: None)
  Receive Date: 20120203
  Receipt Date: 20120120
  Transmission Date: 20120608
  Serious: Yes (Disabling, Other)
  Sender: FDA-Public Use
  Company Number: ES-PFIZER INC-09-AUR-10105

PATIENT
  Age: 54 Year
  Sex: Male

DRUGS (12)
  1. CYCLOSPORINE [Interacting]
     Indication: GRAFT VERSUS HOST DISEASE
     Dosage: 0.5 MG, 1 IN 12 HOURS
     Route: 042
     Dates: end: 20070101
  2. RISPERIDONE [Interacting]
     Indication: PSYCHOTIC DISORDER
  3. ENALAPRIL [Concomitant]
     Indication: MYOCARDIAL INFARCTION
     Dosage: 5 MG, 1X/DAY
     Route: 065
     Dates: start: 20040601
  4. METHOTREXATE [Concomitant]
     Indication: GRAFT VERSUS HOST DISEASE
     Dosage: 15 MG/M2 ON DAY +1
     Route: 042
  5. RISPERIDONE [Interacting]
     Indication: HALLUCINATION
     Dosage: 1 MG, 1X/DAY
     Route: 048
     Dates: start: 20070101, end: 20070101
  6. VORICONAZOLE [Suspect]
     Indication: INFECTION PROPHYLAXIS
     Dosage: 200MG/12 H
     Route: 048
     Dates: start: 20070101, end: 20070101
  7. CYCLOSPORINE [Interacting]
     Dosage: 1.5 MG, 1 IN 12 HOURS
     Route: 042
  8. ACYCLOVIR [Interacting]
     Indication: INFECTION PROPHYLAXIS
     Dosage: 250 MG/12 H
     Route: 042
     Dates: start: 20070101, end: 20070101
  9. RISPERIDONE [Interacting]
     Indication: CONFUSIONAL STATE
  10. METHOTREXATE [Concomitant]
     Dosage: 10 MG/M2 ON DAY +3 AND DAY +6 POST-HPT
  11. ATENOLOL [Concomitant]
     Indication: MYOCARDIAL INFARCTION
     Dosage: 25 MG, 1X/DAY
     Route: 065
     Dates: start: 20040601
  12. SIMVASTATIN [Interacting]
     Indication: MYOCARDIAL INFARCTION
     Dosage: 40 MG, 1X/DAY
     Route: 065
     Dates: start: 20040601, end: 20070101

REACTIONS (7)
  - PSYCHOTIC DISORDER [None]
  - CONFUSIONAL STATE [None]
  - RHABDOMYOLYSIS [None]
  - HALLUCINATIONS, MIXED [None]
  - DRUG INTERACTION [None]
  - RENAL FAILURE ACUTE [None]
  - MUSCLE DISORDER [None]
